FAERS Safety Report 10398346 (Version 1)
Quarter: 2014Q1

REPORT INFORMATION
  Report Type: Spontaneous
  Country: US (occurrence: None)
  Receive Date: 20130815
  Receipt Date: 20130815
  Transmission Date: 20141002
  Serious: Yes (Other)
  Sender: FDA-Public Use
  Company Number: ADR-2012-00769

PATIENT
  Sex: Female

DRUGS (2)
  1. LIORESAL INTRATHECAL (BACLOFEN INJECTION) 500 MCG/ML [Suspect]
     Indication: MULTIPLE SCLEROSIS
  2. MORPHINE [Concomitant]

REACTIONS (5)
  - Drug withdrawal syndrome [None]
  - Tremor [None]
  - Muscle spasms [None]
  - Hot flush [None]
  - Malaise [None]
